FAERS Safety Report 7821249-1 (Version None)
Quarter: 2011Q4

REPORT INFORMATION
  Report Type: 
  Country: None (occurrence: None)
  Receive Date: 20111018
  Receipt Date: 20111005
  Transmission Date: 20120403
  Serious: Yes (Other)
  Sender: FDA-Public Use
  Company Number: BE-PFIZER INC-2011247578

PATIENT
  Age: 60 Year
  Sex: Female

DRUGS (4)
  1. INDERAL [Suspect]
     Indication: ATRIAL FIBRILLATION
     Dosage: 80 MG, DAILY
     Dates: end: 20110901
  2. REPAGLINIDE [Suspect]
     Indication: DIABETES MELLITUS
  3. GLUCOPHAGE [Suspect]
     Indication: DIABETES MELLITUS
  4. INDERAL [Suspect]
     Indication: BLOOD PRESSURE FLUCTUATION

REACTIONS (5)
  - DIZZINESS [None]
  - DIABETES MELLITUS [None]
  - FEELING ABNORMAL [None]
  - FATIGUE [None]
  - BURNOUT SYNDROME [None]
